FAERS Safety Report 8366994-7 (Version None)
Quarter: 2012Q2

REPORT INFORMATION
  Report Type: 
  Country: None (occurrence: None)
  Receive Date: 20120517
  Receipt Date: 20120511
  Transmission Date: 20120825
  Serious: Yes (Other)
  Sender: FDA-Public Use
  Company Number: US-JNJFOC-20120512864

PATIENT
  Sex: Male

DRUGS (3)
  1. NICOTINE POLACRILEX [Suspect]
     Indication: SMOKING CESSATION THERAPY
     Route: 002
  2. NICOTINE [Suspect]
     Indication: SMOKING CESSATION THERAPY
     Route: 062
  3. NICOTINE POLACRILEX [Suspect]
     Indication: SMOKING CESSATION THERAPY
     Route: 002

REACTIONS (3)
  - DRUG ADMINISTRATION ERROR [None]
  - OVERDOSE [None]
  - MYOCARDIAL INFARCTION [None]
